FAERS Safety Report 9851623 (Version 1)
Quarter: 2014Q1

REPORT INFORMATION
  Report Type: Spontaneous
  Country: US (occurrence: US)
  Receive Date: 20140129
  Receipt Date: 20140129
  Transmission Date: 20141002
  Serious: No
  Sender: FDA-Public Use
  Company Number: US-BIOGENIDEC-2014BI007232

PATIENT
  Age: 57 Year
  Sex: Female

DRUGS (7)
  1. TECFIDERA [Suspect]
     Indication: MULTIPLE SCLEROSIS
     Route: 048
     Dates: start: 201311
  2. LEVOTHYROXINE [Concomitant]
  3. BENICAR [Concomitant]
  4. METFORMIN [Concomitant]
  5. LEXAPRO [Concomitant]
  6. BONIVA [Concomitant]
  7. NEXIUM [Concomitant]

REACTIONS (5)
  - White blood cell count increased [Unknown]
  - Flushing [Recovered/Resolved]
  - Vomiting [Recovered/Resolved]
  - Diarrhoea [Recovered/Resolved]
  - Abdominal pain [Not Recovered/Not Resolved]
